FAERS Safety Report 6245306-9 (Version None)
Quarter: 2009Q2

REPORT INFORMATION
  Report Type: 
  Country: None (occurrence: None)
  Receive Date: 20090623
  Receipt Date: 20090623
  Transmission Date: 20091009
  Serious: Yes (Life-Threatening, Hospitalization, Other)
  Sender: FDA-Public Use
  Company Number: None

PATIENT
  Age: 43 Year
  Sex: Female
  Weight: 106.5953 kg

DRUGS (2)
  1. MACROBID [Suspect]
     Indication: PROPHYLAXIS URINARY TRACT INFECTION
     Dosage: 100MG 1 DAILY PO 6 MONTHS OR SO
     Route: 048
     Dates: start: 20050701, end: 20060104
  2. NITROFURANTOIN [Suspect]
     Indication: PROPHYLAXIS URINARY TRACT INFECTION
     Dosage: 100MG 1 DAILY PO
     Route: 048
     Dates: start: 20060105, end: 20090616

REACTIONS (3)
  - DRUG TOXICITY [None]
  - NEUROPATHY PERIPHERAL [None]
  - ORGANISING PNEUMONIA [None]
